FAERS Safety Report 11390920 (Version 1)
Quarter: 2015Q3

REPORT INFORMATION
  Report Type: Spontaneous
  Country: US (occurrence: None)
  Receive Date: 20150814
  Receipt Date: 20150814
  Transmission Date: 20151125
  Serious: Yes (Hospitalization)
  Sender: FDA-Public Use
  Company Number: None

PATIENT
  Age: 44 Year
  Sex: Male
  Weight: 86.1 kg

DRUGS (1)
  1. WARFARIN [Suspect]
     Active Substance: WARFARIN
     Indication: SPLENIC EMBOLISM
     Dates: end: 20150813

REACTIONS (3)
  - Fall [None]
  - International normalised ratio increased [None]
  - Subdural haematoma [None]

NARRATIVE: CASE EVENT DATE: 20150813
